FAERS Safety Report 21592846 (Version 3)
Quarter: 2023Q1

REPORT INFORMATION
  Report Type: Spontaneous
  Country: US (occurrence: US)
  Receive Date: 20221114
  Receipt Date: 20230112
  Transmission Date: 20230418
  Serious: No
  Sender: FDA-Public Use
  Company Number: US-PFIZER INC-2020336003

PATIENT
  Age: 69 Year
  Sex: Female

DRUGS (1)
  1. EUCRISA [Suspect]
     Active Substance: CRISABOROLE
     Indication: Vitiligo
     Dosage: UNK, 2X/DAY (100G)

REACTIONS (6)
  - Herpes zoster [Recovered/Resolved]
  - Sinus disorder [Unknown]
  - Head discomfort [Unknown]
  - Cough [Unknown]
  - Off label use [Unknown]
  - Drug effective for unapproved indication [Unknown]
